FAERS Safety Report 9131278 (Version 3)
Quarter: 2013Q3

REPORT INFORMATION
  Report Type: Report from Study
  Country: DE (occurrence: DE)
  Receive Date: 20130301
  Receipt Date: 20130709
  Transmission Date: 20140515
  Serious: Yes (Death, Hospitalization, Other)
  Sender: FDA-Public Use
  Company Number: DE-ASTELLAS-2013US002075

PATIENT
  Sex: Female

DRUGS (12)
  1. ERLOTINIB TABLET [Suspect]
     Indication: NON-SMALL CELL LUNG CANCER
     Dosage: 150 MG, UID/QD
     Route: 048
     Dates: start: 200701, end: 200705
  2. ERLOTINIB TABLET [Suspect]
     Dosage: 100 MG, UID/QD
     Route: 048
     Dates: start: 200706, end: 200708
  3. ERLOTINIB TABLET [Suspect]
     Dosage: 50 MG, UID/QD
     Route: 048
     Dates: start: 200708, end: 200802
  4. ERLOTINIB TABLET [Suspect]
     Dosage: 150 MG, UNKNOWN/D
     Route: 048
     Dates: start: 20061222, end: 20070910
  5. ERLOTINIB TABLET [Suspect]
     Dosage: 50 MG, UNKNOWN/D
     Route: 065
     Dates: start: 20070911, end: 20080310
  6. MARCUMAR [Concomitant]
     Indication: PRODUCT USED FOR UNKNOWN INDICATION
     Dosage: UNK
     Route: 065
  7. HEPARIN [Concomitant]
     Indication: PRODUCT USED FOR UNKNOWN INDICATION
     Dosage: UNK
     Route: 065
  8. GEMCITABINE [Concomitant]
     Indication: PRODUCT USED FOR UNKNOWN INDICATION
     Dosage: UNK
     Dates: start: 200611, end: 200612
  9. ASPIRIN [Concomitant]
     Indication: PRODUCT USED FOR UNKNOWN INDICATION
     Dosage: UNK
     Route: 065
  10. SIMVASTATIN [Concomitant]
     Indication: PRODUCT USED FOR UNKNOWN INDICATION
     Dosage: UNK
     Route: 065
     Dates: start: 20061211, end: 20080310
  11. CONCOR 5 PLUS [Concomitant]
     Indication: PRODUCT USED FOR UNKNOWN INDICATION
     Dosage: UNK
     Route: 065
     Dates: start: 20061211, end: 20080310
  12. CISPLATIN [Concomitant]
     Indication: PRODUCT USED FOR UNKNOWN INDICATION
     Dosage: UNK
     Route: 065
     Dates: start: 200611, end: 200612

REACTIONS (8)
  - Subdural haematoma [Fatal]
  - Pulmonary embolism [Unknown]
  - Cerebral thrombosis [Unknown]
  - Cerebellar infarction [Unknown]
  - Malignant neoplasm progression [Unknown]
  - Splenic cyst [Unknown]
  - Hepatic steatosis [Unknown]
  - Rash [Unknown]
